FAERS Safety Report 22271279 (Version 1)
Quarter: 2023Q2

REPORT INFORMATION
  Report Type: Spontaneous
  Country: US (occurrence: US)
  Receive Date: 20230501
  Receipt Date: 20230501
  Transmission Date: 20230722
  Serious: No
  Sender: FDA-Public Use
  Company Number: US-BAUSCH-BL-2023-006412

PATIENT
  Age: 54 Year
  Sex: Male
  Weight: 86.260 kg

DRUGS (2)
  1. EFUDEX [Suspect]
     Active Substance: FLUOROURACIL
     Indication: Skin papilloma
     Route: 061
     Dates: start: 20220815, end: 2022
  2. EFUDEX [Suspect]
     Active Substance: FLUOROURACIL
     Indication: Off label use

REACTIONS (3)
  - Skin disorder [Recovering/Resolving]
  - Off label use [Unknown]
  - Therapy cessation [Unknown]

NARRATIVE: CASE EVENT DATE: 20220101
